FAERS Safety Report 10706009 (Version 1)
Quarter: 2015Q1

REPORT INFORMATION
  Report Type: Report from Study
  Country: US (occurrence: US)
  Receive Date: 20150113
  Receipt Date: 20150113
  Transmission Date: 20150721
  Serious: No
  Sender: FDA-Public Use
  Company Number: US-AMGEN INC.-USASL2015001514

PATIENT
  Age: 47 Year
  Sex: Female
  Weight: 92.52 kg

DRUGS (1)
  1. ENBREL [Suspect]
     Active Substance: ETANERCEPT
     Indication: RHEUMATOID ARTHRITIS
     Dosage: 50 MG, WEEKLY
     Route: 058
     Dates: start: 2006, end: 20150102

REACTIONS (2)
  - Treatment failure [Unknown]
  - Joint swelling [Unknown]

NARRATIVE: CASE EVENT DATE: 201410
